FAERS Safety Report 9585468 (Version 1)
Quarter: 2013Q4

REPORT INFORMATION
  Report Type: Spontaneous
  Country: US (occurrence: US)
  Receive Date: 20131003
  Receipt Date: 20131003
  Transmission Date: 20140711
  Serious: Yes (Death)
  Sender: FDA-Public Use
  Company Number: US-ROCHE-1284332

PATIENT
  Sex: Male

DRUGS (2)
  1. RITUXAN [Suspect]
     Indication: VASCULITIS
     Route: 065
  2. RITUXAN [Suspect]
     Indication: GRANULOMATOSIS WITH POLYANGIITIS

REACTIONS (1)
  - Death [Fatal]
